FAERS Safety Report 20671501 (Version 4)
Quarter: 2022Q3

REPORT INFORMATION
  Report Type: Spontaneous
  Country: JP (occurrence: JP)
  Receive Date: 20220404
  Receipt Date: 20220706
  Transmission Date: 20221027
  Serious: Yes (Death, Other)
  Sender: FDA-Public Use
  Company Number: JP-GSKJP-JP2022JPN047777

PATIENT
  Sex: Female

DRUGS (8)
  1. BOTOX [Suspect]
     Active Substance: ONABOTULINUMTOXINA
     Indication: Muscle spasticity
     Dosage: 350 UNITS, SINGLE
     Route: 030
     Dates: start: 20220302, end: 20220302
  2. BOTOX [Suspect]
     Active Substance: ONABOTULINUMTOXINA
     Dosage: UNK UNK, SINGLE
     Route: 030
     Dates: start: 20211014, end: 20211014
  3. BOTOX [Suspect]
     Active Substance: ONABOTULINUMTOXINA
     Dosage: UNK UNK, SINGLE
     Route: 030
     Dates: start: 20211014, end: 20211014
  4. PREDNISOLONE [Concomitant]
     Active Substance: PREDNISOLONE
     Indication: Rheumatoid vasculitis
     Dosage: 3 MG, QD
     Dates: start: 1995, end: 20220319
  5. LIORESAL [Concomitant]
     Active Substance: BACLOFEN
     Indication: Muscle spasms
     Dosage: 5 MG, QD
     Dates: end: 20220311
  6. BIO-THREE [Concomitant]
     Active Substance: HERBALS
     Indication: Constipation
     Dosage: 6 DF, QD
     Dates: end: 20220311
  7. TULOBUTEROL tape [Concomitant]
     Indication: Productive cough
     Dosage: 2 MG, QD
     Dates: end: 20220330
  8. ACETAMINOPHEN [Concomitant]
     Active Substance: ACETAMINOPHEN
     Indication: Antipyresis
     Dosage: UNK, PRN
     Route: 054
     Dates: end: 20220330

REACTIONS (8)
  - Atelectasis [Fatal]
  - Pyrexia [Fatal]
  - Pleural effusion [Fatal]
  - Pneumonia [Fatal]
  - Cellulitis [Unknown]
  - Muscular weakness [Recovering/Resolving]
  - Product administered at inappropriate site [Unknown]
  - Off label use [Unknown]

NARRATIVE: CASE EVENT DATE: 20220307
